FAERS Safety Report 12582589 (Version 1)
Quarter: 2016Q3

REPORT INFORMATION
  Report Type: Spontaneous
  Country: CA (occurrence: CA)
  Receive Date: 20160722
  Receipt Date: 20160722
  Transmission Date: 20161109
  Serious: Yes (Life-Threatening, Hospitalization, Other)
  Sender: FDA-Public Use
  Company Number: CA-JNJFOC-20160712999

PATIENT
  Age: 83 Year
  Sex: Male
  Weight: 94 kg

DRUGS (25)
  1. ASAPHEN [Concomitant]
     Active Substance: ASPIRIN
     Route: 065
  2. EURO D [Concomitant]
     Route: 065
  3. APO-GLICLAZIDE [Concomitant]
     Active Substance: GLICLAZIDE
     Route: 065
  4. APO-RANITIDINE [Concomitant]
     Active Substance: RANITIDINE
     Route: 065
  5. TRADJENTA [Concomitant]
     Active Substance: LINAGLIPTIN
     Route: 065
  6. ZYTIGA [Suspect]
     Active Substance: ABIRATERONE ACETATE
     Indication: PROSTATE CANCER
     Route: 048
  7. RAN ROSUVASTATIN [Concomitant]
     Route: 065
  8. XGEVA [Concomitant]
     Active Substance: DENOSUMAB
     Route: 058
  9. NITROGLYCERIN. [Concomitant]
     Active Substance: NITROGLYCERIN
     Route: 060
  10. APO-PREDNISONE [Concomitant]
     Active Substance: PREDNISONE
     Route: 065
  11. APO-FLURAZEPAM [Concomitant]
     Active Substance: FLURAZEPAM HYDROCHLORIDE
     Route: 065
  12. PMS-FERROUS SULFATE [Concomitant]
     Route: 065
  13. APO-AMLODIPINE [Concomitant]
     Active Substance: AMLODIPINE BESYLATE
     Route: 065
  14. PMS-ATENOLOL [Concomitant]
     Route: 065
  15. ROSUVASTATIN. [Interacting]
     Active Substance: ROSUVASTATIN
     Indication: DYSLIPIDAEMIA
     Route: 048
  16. LANTUS [Concomitant]
     Active Substance: INSULIN GLARGINE
     Route: 058
  17. LUPRON [Concomitant]
     Active Substance: LEUPROLIDE ACETATE
     Route: 065
  18. PANTOPRAZOLE [Concomitant]
     Active Substance: PANTOPRAZOLE SODIUM
     Route: 065
  19. RAN CLOPIDOGREL [Concomitant]
     Route: 065
  20. CELECOXIB. [Concomitant]
     Active Substance: CELECOXIB
     Route: 065
  21. ZYTIGA [Suspect]
     Active Substance: ABIRATERONE ACETATE
     Indication: PROSTATE CANCER
     Route: 048
  22. DILAUDID [Concomitant]
     Active Substance: HYDROMORPHONE HYDROCHLORIDE
     Route: 065
  23. RAPAFLO [Concomitant]
     Active Substance: SILODOSIN
     Route: 065
  24. RAN ROSUVASTATIN [Concomitant]
     Route: 065
  25. ONEALFA [Concomitant]
     Active Substance: ALFACALCIDOL
     Route: 065

REACTIONS (5)
  - Drug interaction [Not Recovered/Not Resolved]
  - Haemodialysis [Not Recovered/Not Resolved]
  - Hepatotoxicity [Not Recovered/Not Resolved]
  - Rhabdomyolysis [Not Recovered/Not Resolved]
  - Acute kidney injury [Not Recovered/Not Resolved]
